FAERS Safety Report 10230253 (Version 1)
Quarter: 2014Q2

REPORT INFORMATION
  Report Type: Spontaneous
  Country: GB (occurrence: GB)
  Receive Date: 20140611
  Receipt Date: 20140611
  Transmission Date: 20141212
  Serious: Yes (Death)
  Sender: FDA-Public Use
  Company Number: GB-BAXTER-2014BAX028772

PATIENT
  Sex: 0

DRUGS (3)
  1. CYCLOPHOSPHAMIDE INJECTION 1G [Suspect]
     Indication: PRODUCT USED FOR UNKNOWN INDICATION
     Route: 065
     Dates: start: 20140326
  2. SODIUM CHLORIDE INTRAVENOUS INFUSION BP 0.9%W/V [Suspect]
     Indication: MEDICATION DILUTION
     Route: 065
     Dates: start: 20140326
  3. SODIUM CHLORIDE INTRAVENOUS INFUSION BP 0.9%W/V [Suspect]
     Route: 065
     Dates: start: 20140326

REACTIONS (1)
  - Adverse drug reaction [Fatal]
